FAERS Safety Report 19456442 (Version 1)
Quarter: 2021Q2

REPORT INFORMATION
  Report Type: Spontaneous
  Country: NL (occurrence: NL)
  Receive Date: 20210624
  Receipt Date: 20210624
  Transmission Date: 20210717
  Serious: Yes (Other)
  Sender: FDA-Public Use
  Company Number: NL-TEVA-2021-NL-1925161

PATIENT
  Age: 54 Year
  Sex: Male
  Weight: 90.4 kg

DRUGS (2)
  1. ROSUVASTATINE TABLET 10MG / BRAND NAME NOT SPECIFIED [Concomitant]
     Active Substance: ROSUVASTATIN
     Dosage: 10 MG (MILLIGRAM); THERAPY START AND END DATE: ASKU
  2. DICLOFENAC?NATRIUM TABLET MGA  75MG / BRAND NAME NOT SPECIFIED [Suspect]
     Active Substance: DICLOFENAC SODIUM
     Indication: TENDON DISORDER
     Dosage: 150 MILLIGRAM DAILY; 2X PER DAY 1 PIECE; THERAPY END DATE: ASKU
     Route: 065
     Dates: start: 20200821

REACTIONS (1)
  - Renal impairment [Not Recovered/Not Resolved]

NARRATIVE: CASE EVENT DATE: 20201026
